FAERS Safety Report 10835882 (Version 2)
Quarter: 2015Q1

REPORT INFORMATION
  Report Type: Spontaneous
  Country: US (occurrence: None)
  Receive Date: 20150218
  Receipt Date: 20150218
  Transmission Date: 20150721
  Serious: Yes (Other)
  Sender: FDA-Public Use
  Company Number: US-H14001-15-00184

PATIENT
  Age: 79 Year
  Sex: Female
  Weight: 70.31 kg

DRUGS (5)
  1. VITAMIN C [Concomitant]
     Active Substance: ASCORBIC ACID
  2. VITAMIN B6 [Concomitant]
     Active Substance: PYRIDOXINE HYDROCHLORIDE
  3. AMOXICILLIN. [Suspect]
     Active Substance: AMOXICILLIN
     Indication: CYSTITIS
     Dosage: 1 TEASPOON
     Route: 048
     Dates: start: 20150122, end: 20150122
  4. VITAMIN B12 [Concomitant]
     Active Substance: CYANOCOBALAMIN
  5. AMOXICILLIN (AMOXICILLIN TRIHYDRATE) [Concomitant]
     Active Substance: AMOXICILLIN

REACTIONS (7)
  - Hypersensitivity [None]
  - Abdominal discomfort [None]
  - Oral mucosal blistering [None]
  - Swollen tongue [None]
  - Tongue blistering [None]
  - Throat tightness [None]
  - Pharyngeal oedema [None]

NARRATIVE: CASE EVENT DATE: 2015
